FAERS Safety Report 4682891-2 (Version None)
Quarter: 2005Q2

REPORT INFORMATION
  Report Type: 
  Country: None (occurrence: None)
  Receive Date: 20050531
  Receipt Date: 20041206
  Transmission Date: 20051028
  Serious: Yes (Hospitalization)
  Sender: FDA-Public Use
  Company Number: 200418893US

PATIENT
  Age: 74 Year
  Sex: Female
  Weight: 66.8 kg

DRUGS (6)
  1. LOVENOX [Suspect]
     Indication: PROPHYLAXIS
     Dosage: 30 MG Q12H
     Dates: start: 20041101, end: 20041112
  2. PARACETAMOL, OXYCODONE HYDROCHLORIDE (PERCOCET) [Concomitant]
  3. PEPCID [Concomitant]
  4. SYNTHROID [Concomitant]
  5. FERROUS SULFATE [Concomitant]
  6. ASCORBIC ACID [Concomitant]

REACTIONS (3)
  - HEPARIN-INDUCED THROMBOCYTOPENIA [None]
  - INJECTION SITE NECROSIS [None]
  - SWELLING [None]
